FAERS Safety Report 10534074 (Version 1)
Quarter: 2014Q4

REPORT INFORMATION
  Report Type: Spontaneous
  Country: US (occurrence: None)
  Receive Date: 20141020
  Receipt Date: 20141020
  Transmission Date: 20150529
  Serious: Yes (Other)
  Sender: FDA-Public Use
  Company Number: 2577514

PATIENT
  Age: 69 Year

DRUGS (3)
  1. CYCLOPHOSPHAMIDE. [Suspect]
     Active Substance: CYCLOPHOSPHAMIDE
     Indication: CHRONIC LYMPHOCYTIC LEUKAEMIA
     Dosage: 1500MG 1 WEEK
     Route: 042
     Dates: start: 20100618, end: 20101008
  2. RITUXAN [Suspect]
     Active Substance: RITUXIMAB
     Indication: CHRONIC LYMPHOCYTIC LEUKAEMIA
     Dosage: 570 MG 1 WEEK
     Route: 042
     Dates: start: 20100618, end: 20101008
  3. VINCRISTINE SULFATE INJECTION, USP, 1MG/ML (VINCRISTINE SULFATE) [Suspect]
     Active Substance: VINCRISTINE SULFATE
     Indication: CHRONIC LYMPHOCYTIC LEUKAEMIA
     Dosage: 2MG 1 WEEK
     Route: 042
     Dates: start: 20100618, end: 20101008

REACTIONS (2)
  - Seizure [None]
  - Febrile neutropenia [None]

NARRATIVE: CASE EVENT DATE: 20100716
